FAERS Safety Report 9280169 (Version 1)
Quarter: 2012Q4

REPORT INFORMATION
  Report Type: Spontaneous
  Country: IN (occurrence: None)
  Receive Date: 20120917
  Receipt Date: 20120917
  Transmission Date: 20130627
  Serious: Yes (Life-Threatening, Hospitalization)
  Sender: FDA-Public Use
  Company Number: IPC201208-000336

PATIENT
  Age: 25 Year
  Sex: Male

DRUGS (1)
  1. CHLOROQUINE PHOSPHATE [Suspect]
     Indication: FEVER
     Dosage: 2 tablet (600 mg base)
     Route: 048

REACTIONS (2)
  - Methaemoglobinaemia [None]
  - Loss of consciousness [None]
